FAERS Safety Report 9977805 (Version 2)
Quarter: 2014Q1

REPORT INFORMATION
  Report Type: Report from Study
  Country: US (occurrence: US)
  Receive Date: 20140306
  Receipt Date: 20140306
  Transmission Date: 20141002
  Serious: No
  Sender: FDA-Public Use
  Company Number: US-ABBVIE-13P-163-1148722-00

PATIENT
  Age: 56 Year
  Sex: Female

DRUGS (12)
  1. HUMIRA [Suspect]
     Indication: COLITIS ULCERATIVE
     Dates: start: 20120802, end: 20120802
  2. HUMIRA [Suspect]
     Dates: start: 20130816, end: 20130816
  3. HUMIRA [Suspect]
  4. ASACOL HD [Concomitant]
     Indication: COLITIS ULCERATIVE
  5. HYOSCYAMINE [Concomitant]
     Indication: COLITIS ULCERATIVE
  6. LISINOPRIL [Concomitant]
     Indication: HYPERTENSION
  7. AMLODIPINE BESYLATE [Concomitant]
     Indication: HYPERTENSION
  8. PENTOXIFYLLINE [Concomitant]
     Indication: RASH
  9. TRIAMCINOLONE [Concomitant]
     Indication: RASH
     Route: 061
  10. PREDNISONE [Concomitant]
     Indication: COLITIS ULCERATIVE
     Dates: end: 20130805
  11. PREDNISONE [Concomitant]
     Dates: start: 20131002
  12. PREDNISONE [Concomitant]

REACTIONS (7)
  - Frequent bowel movements [Not Recovered/Not Resolved]
  - Nausea [Not Recovered/Not Resolved]
  - Abdominal pain [Not Recovered/Not Resolved]
  - Haematochezia [Not Recovered/Not Resolved]
  - Drug ineffective [Recovering/Resolving]
  - Diarrhoea [Not Recovered/Not Resolved]
  - Muscle spasms [Not Recovered/Not Resolved]
